FAERS Safety Report 12871453 (Version 1)
Quarter: 2016Q4

REPORT INFORMATION
  Report Type: Spontaneous
  Country: US (occurrence: US)
  Receive Date: 20161020
  Receipt Date: 20161020
  Transmission Date: 20170207
  Serious: Yes (Other)
  Sender: FDA-Public Use
  Company Number: None

PATIENT
  Age: 24 Year
  Sex: Male

DRUGS (1)
  1. BOTOX [Suspect]
     Active Substance: ONABOTULINUMTOXINA
     Indication: MIGRAINE
     Dosage: 100 UNITS EVERY 90 DAYS IM
     Route: 030
     Dates: start: 20160921, end: 20160921

REACTIONS (5)
  - Back pain [None]
  - Muscle spasms [None]
  - Pain [None]
  - Myalgia [None]
  - Tachycardia [None]

NARRATIVE: CASE EVENT DATE: 20160922
